FAERS Safety Report 15036110 (Version 1)
Quarter: 2018Q2

REPORT INFORMATION
  Report Type: Spontaneous
  Country: ES (occurrence: ES)
  Receive Date: 20180620
  Receipt Date: 20180620
  Transmission Date: 20180711
  Serious: Yes (Other)
  Sender: FDA-Public Use
  Company Number: PHHY2018ES021203

PATIENT
  Age: 45 Year
  Sex: Male

DRUGS (1)
  1. SECUKINUMAB. [Suspect]
     Active Substance: SECUKINUMAB
     Indication: PSORIASIS
     Dosage: UNK
     Route: 065
     Dates: start: 201512

REACTIONS (6)
  - Glossodynia [Recovered/Resolved]
  - Tongue discolouration [Recovered/Resolved]
  - Therapeutic response decreased [Unknown]
  - Oral disorder [Recovered/Resolved]
  - Tongue ulceration [Recovered/Resolved]
  - Lichenification [Recovered/Resolved]
